FAERS Safety Report 6937079-9 (Version None)
Quarter: 2010Q3

REPORT INFORMATION
  Report Type: 
  Country: None (occurrence: None)
  Receive Date: 20100823
  Receipt Date: 20100818
  Transmission Date: 20110219
  Serious: Yes (Death)
  Sender: FDA-Public Use
  Company Number: PHHY2010US47406

PATIENT
  Sex: Male

DRUGS (1)
  1. NEORAL [Suspect]
     Indication: COMPLICATIONS OF TRANSPLANT SURGERY
     Dosage: 75 MG AM, 100 MG PM

REACTIONS (1)
  - DEATH [None]
